FAERS Safety Report 18359901 (Version 2)
Quarter: 2022Q1

REPORT INFORMATION
  Report Type: Report from Study
  Country: US (occurrence: US)
  Receive Date: 20201008
  Receipt Date: 20220318
  Transmission Date: 20220423
  Serious: Yes (Death)
  Sender: FDA-Public Use
  Company Number: US-MYLANLABS-2020M1084308

PATIENT
  Age: 83 Year
  Sex: Female
  Weight: 52 kg

DRUGS (19)
  1. SODIUM CHLORIDE [Suspect]
     Active Substance: SODIUM CHLORIDE
     Indication: Clostridium difficile immunisation
     Dosage: UNK, SINGLE DOSE
     Route: 030
     Dates: start: 20171220, end: 20171220
  2. PROMETHAZINE HYDROCHLORIDE [Concomitant]
     Active Substance: PROMETHAZINE HYDROCHLORIDE
     Indication: Nausea
     Dosage: 12.5 MILLIGRAM, PRN, AS NEEDED
     Route: 048
     Dates: start: 20171130, end: 20180113
  3. DICYCLOMINE [Concomitant]
     Active Substance: DICYCLOMINE HYDROCHLORIDE
     Indication: Irritable bowel syndrome
     Dosage: 10 MILLIGRAM, QD
     Route: 048
     Dates: start: 2014, end: 20180113
  4. CLONAZEPAM [Concomitant]
     Active Substance: CLONAZEPAM
     Indication: Anxiety
     Dosage: 0.25 MILLIGRAM, PRN, AS NEEDED
     Route: 048
     Dates: start: 20171130, end: 20180113
  5. GABAPENTIN [Concomitant]
     Active Substance: GABAPENTIN
     Indication: Neuropathy peripheral
     Dosage: 600 MILLIGRAM, QD
     Route: 048
     Dates: start: 20171130, end: 20180113
  6. METOPROLOL [Concomitant]
     Active Substance: METOPROLOL
     Indication: Hypertension
     Dosage: UNK
     Dates: start: 2014
  7. AMLODIPINE [Concomitant]
     Active Substance: AMLODIPINE BESYLATE
     Indication: Hypertension
     Dosage: UNK
     Dates: start: 2014
  8. NITROGLYCERIN [Concomitant]
     Active Substance: NITROGLYCERIN
     Indication: Angina pectoris
     Dosage: UNK
  9. ARMOUR THYROID [Concomitant]
     Active Substance: THYROID, PORCINE
     Indication: Hypothyroidism
     Dosage: UNK
     Dates: start: 2012
  10. CARVEDILOL [Concomitant]
     Active Substance: CARVEDILOL
     Indication: Hypertension
     Dosage: UNK
     Dates: start: 20171130
  11. RANEXA [Concomitant]
     Active Substance: RANOLAZINE
     Indication: Angina pectoris
     Dosage: UNK
     Dates: start: 20171130
  12. ACETAMINOPHEN\HYDROCODONE [Concomitant]
     Active Substance: ACETAMINOPHEN\HYDROCODONE
     Indication: Pain
     Dosage: UNK
     Dates: start: 20171130
  13. ASPIRIN [Concomitant]
     Active Substance: ASPIRIN
     Indication: Prophylaxis
     Dosage: UNK
  14. HYDRALAZINE [Concomitant]
     Active Substance: HYDRALAZINE HYDROCHLORIDE
     Indication: Hypertension
     Dosage: UNK
     Dates: start: 20171130
  15. REMERON [Concomitant]
     Active Substance: MIRTAZAPINE
     Indication: Depression
     Dosage: UNK
     Dates: start: 20171130
  16. SEROQUEL [Concomitant]
     Active Substance: QUETIAPINE FUMARATE
     Indication: Depression
     Dosage: UNK
     Dates: start: 20171130
  17. EFFEXOR [Concomitant]
     Active Substance: VENLAFAXINE HYDROCHLORIDE
     Indication: Anxiety
     Dosage: UNK
     Dates: start: 20171130
  18. AMBIEN [Concomitant]
     Active Substance: ZOLPIDEM TARTRATE
     Indication: Insomnia
     Dosage: UNK
     Dates: start: 20171130
  19. ISOSORBIDE MONONITRATE [Concomitant]
     Active Substance: ISOSORBIDE MONONITRATE
     Indication: Angina pectoris
     Dosage: UNK
     Dates: start: 20171130

REACTIONS (1)
  - Cardiac arrest [Fatal]

NARRATIVE: CASE EVENT DATE: 20180113
